FAERS Safety Report 16317658 (Version 2)
Quarter: 2019Q2

REPORT INFORMATION
  Report Type: Spontaneous
  Country: IL (occurrence: IL)
  Receive Date: 20190516
  Receipt Date: 20190607
  Transmission Date: 20190711
  Serious: Yes (Other)
  Sender: FDA-Public Use
  Company Number: IL-SA-2019SA131512

PATIENT
  Age: 67 Year
  Sex: Male

DRUGS (1)
  1. SULIQUA [Suspect]
     Active Substance: INSULIN GLARGINE\LIXISENATIDE
     Dosage: 34 DOSE STEPS
     Route: 065
     Dates: start: 20190120

REACTIONS (2)
  - Blindness [Unknown]
  - Vision blurred [Unknown]
